FAERS Safety Report 7943759-9 (Version None)
Quarter: 2011Q4

REPORT INFORMATION
  Report Type: 
  Country: None (occurrence: None)
  Receive Date: 20111128
  Receipt Date: 20111122
  Transmission Date: 20120403
  Serious: Yes (Hospitalization, Other)
  Sender: FDA-Public Use
  Company Number: JP-ROCHE-1016310

PATIENT
  Age: 78 Year
  Sex: Male

DRUGS (5)
  1. LEVOLEUCOVORIN CALCIUM [Suspect]
     Indication: LARGE INTESTINE CARCINOMA
     Dosage: DOSAGE IS UNCERTAIN.
     Route: 041
  2. AVASTIN [Suspect]
     Indication: LARGE INTESTINE CARCINOMA
     Route: 041
     Dates: start: 20110601, end: 20110901
  3. FLUOROURACIL [Suspect]
     Dosage: DOSAGE IS UNCERTAIN.
     Route: 041
  4. OXALIPLATIN [Suspect]
     Indication: LARGE INTESTINE CARCINOMA
     Dosage: DOSAGE IS UNCERTAIN.
     Route: 041
  5. FLUOROURACIL [Suspect]
     Indication: LARGE INTESTINE CARCINOMA
     Dosage: DOSAGE IS UNCERTAIN.
     Route: 040

REACTIONS (2)
  - DEEP VEIN THROMBOSIS [None]
  - INTERSTITIAL LUNG DISEASE [None]
